FAERS Safety Report 5302054-7 (Version None)
Quarter: 2007Q2

REPORT INFORMATION
  Report Type: 
  Country: None (occurrence: None)
  Receive Date: 20070416
  Receipt Date: 20070416
  Transmission Date: 20071010
  Serious: Yes (Life-Threatening)
  Sender: FDA-Public Use
  Company Number: None

PATIENT
  Sex: Female
  Weight: 79.3795 kg

DRUGS (2)
  1. ZELNORM [Suspect]
     Indication: HIATUS HERNIA
     Dosage: 1 TABLET   TWICE A DAY
     Dates: start: 20060911, end: 20070330
  2. ZELNORM [Suspect]
     Indication: IRRITABLE BOWEL SYNDROME
     Dosage: 1 TABLET   TWICE A DAY
     Dates: start: 20060911, end: 20070330

REACTIONS (2)
  - PULMONARY EMBOLISM [None]
  - PULMONARY THROMBOSIS [None]
